FAERS Safety Report 4264829-5 (Version None)
Quarter: 2004Q1

REPORT INFORMATION
  Report Type: 
  Country: None (occurrence: None)
  Receive Date: 20040105
  Receipt Date: 20031217
  Transmission Date: 20041129
  Serious: Yes (Hospitalization)
  Sender: FDA-Public Use
  Company Number: 200314791FR

PATIENT
  Age: 64 Year
  Sex: Male

DRUGS (6)
  1. RAMIPRIL [Suspect]
     Dosage: PO
     Dates: end: 20031120
  2. FUROSEMIDE [Suspect]
     Dosage: 40 MG QD PO
     Dates: start: 20031008, end: 20031122
  3. ALDACTONE [Suspect]
     Dosage: PO
     Dates: end: 20031122
  4. PERGOLIDE MESILATE (CELANCE) TABLETS [Suspect]
     Dates: end: 20031125
  5. PRAVASTATIN SODIUM [Concomitant]
  6. LEVODOPA, BENSERAZIDE HYDROCHLORIDE (MODOPAR) [Concomitant]

REACTIONS (1)
  - PERICARDITIS CONSTRICTIVE [None]
